FAERS Safety Report 15674375 (Version 1)
Quarter: 2018Q4

REPORT INFORMATION
  Report Type: Spontaneous
  Country: US (occurrence: US)
  Receive Date: 20181128
  Receipt Date: 20181128
  Transmission Date: 20190205
  Serious: No
  Sender: FDA-Public Use
  Company Number: None

PATIENT
  Age: 67 Year
  Sex: Male

DRUGS (1)
  1. HARVONI [Suspect]
     Active Substance: LEDIPASVIR\SOFOSBUVIR
     Indication: HEPATITIS C
     Route: 008
     Dates: start: 201811

REACTIONS (3)
  - Rhinorrhoea [None]
  - Seasonal allergy [None]
  - Hypersensitivity [None]

NARRATIVE: CASE EVENT DATE: 20181127
